FAERS Safety Report 7520034-8 (Version None)
Quarter: 2011Q2

REPORT INFORMATION
  Report Type: 
  Country: None (occurrence: None)
  Receive Date: 20110602
  Receipt Date: 20110525
  Transmission Date: 20111010
  Serious: Yes (Hospitalization, Other)
  Sender: FDA-Public Use
  Company Number: US-ACTELION-A-US2011-48836

PATIENT

DRUGS (4)
  1. SILDENAFIL CITRATE [Concomitant]
  2. EPOPROSTENOL SODIUM [Suspect]
     Indication: PULMONARY ARTERIAL HYPERTENSION
     Dosage: 12 NG/KG/MIN
     Route: 042
     Dates: start: 20110307
  3. COUMADIN [Concomitant]
  4. EPOPROSTENOL SODIUM [Suspect]
     Dosage: 12 NG/KG, PER MIN
     Route: 042

REACTIONS (8)
  - SUBDURAL HAEMATOMA [None]
  - DYSARTHRIA [None]
  - NAUSEA [None]
  - DIARRHOEA [None]
  - SUBDURAL HAEMATOMA EVACUATION [None]
  - HEADACHE [None]
  - ASTHENIA [None]
  - VOMITING [None]
